FAERS Safety Report 10141718 (Version 1)
Quarter: 2014Q2

REPORT INFORMATION
  Report Type: Spontaneous
  Country: US (occurrence: US)
  Receive Date: 20140429
  Receipt Date: 20140429
  Transmission Date: 20141212
  Serious: No
  Sender: FDA-Public Use
  Company Number: US-MYLANLABS-2013S1015180

PATIENT
  Age: 58 Year
  Sex: Female
  Weight: 72.58 kg

DRUGS (8)
  1. LORAZEPAM TABLETS, USP [Suspect]
     Indication: ANXIETY
     Dosage: USUALLY TAKES BID PRN BUT CAN TAKE TID PRN
     Route: 048
     Dates: start: 2011, end: 20130708
  2. TRAZODONE [Concomitant]
     Route: 048
  3. TRAMADOL [Concomitant]
     Route: 048
  4. ROPINIROLE [Concomitant]
     Route: 048
  5. BUPROPION [Concomitant]
     Dosage: SR
     Route: 048
  6. BYSTOLIC [Concomitant]
     Route: 048
  7. LORATADINE [Concomitant]
     Route: 048
  8. ALBUTEROL [Concomitant]
     Route: 055

REACTIONS (1)
  - False negative investigation result [Not Recovered/Not Resolved]
